FAERS Safety Report 10686880 (Version 7)
Quarter: 2016Q2

REPORT INFORMATION
  Report Type: Report from Study
  Country: CA (occurrence: CA)
  Receive Date: 20150102
  Receipt Date: 20160404
  Transmission Date: 20160815
  Serious: Yes (Other)
  Sender: FDA-Public Use
  Company Number: CA-ROCHE-1367542

PATIENT
  Age: 52 Year
  Sex: Female
  Weight: 89 kg

DRUGS (4)
  1. ACTEMRA [Suspect]
     Active Substance: TOCILIZUMAB
     Route: 042
     Dates: start: 20130131
  2. ACTEMRA [Suspect]
     Active Substance: TOCILIZUMAB
     Indication: RHEUMATOID ARTHRITIS
     Dosage: (FIRST RPAP DOSE)
     Route: 042
     Dates: start: 20121203
  3. ACTEMRA [Suspect]
     Active Substance: TOCILIZUMAB
     Indication: RHEUMATOID ARTHRITIS
     Dosage: BEFORE RPAP ACTEMRA IV DOSING
     Route: 058
  4. METHOTREXATE [Concomitant]
     Active Substance: METHOTREXATE

REACTIONS (11)
  - Fall [Unknown]
  - Bronchitis [Recovering/Resolving]
  - Lower limb fracture [Unknown]
  - Infusion related reaction [Unknown]
  - Lower respiratory tract infection [Recovering/Resolving]
  - Sinus congestion [Not Recovered/Not Resolved]
  - Blood pressure diastolic decreased [Unknown]
  - Lower respiratory tract infection [Not Recovered/Not Resolved]
  - Asthma [Not Recovered/Not Resolved]
  - Ligament rupture [Unknown]
  - Blood pressure fluctuation [Unknown]

NARRATIVE: CASE EVENT DATE: 20130317
